FAERS Safety Report 5891073-8 (Version None)
Quarter: 2008Q3

REPORT INFORMATION
  Report Type: 
  Country: None (occurrence: None)
  Receive Date: 20080916
  Receipt Date: 20080916
  Transmission Date: 20090109
  Serious: Yes (Hospitalization)
  Sender: FDA-Public Use
  Company Number: None

PATIENT
  Age: 42 Year
  Sex: Female
  Weight: 46.7205 kg

DRUGS (19)
  1. AVASTIN [Suspect]
     Indication: NON-SMALL CELL LUNG CANCER
     Dosage: 15 MG/KG IV D-14 + Q12D
     Dates: start: 20080605
  2. ABRAXANE [Suspect]
     Indication: NON-SMALL CELL LUNG CANCER
     Dosage: 100MG/M2 IV D1,8 AND 15
     Dates: start: 20080630, end: 20080804
  3. CARBOPLATIN [Suspect]
     Indication: NON-SMALL CELL LUNG CANCER
     Dosage: AUC 6 Q 21 DAYS
     Dates: start: 20080630, end: 20080721
  4. ALBUTEROL [Concomitant]
  5. ATIVAN [Concomitant]
  6. ATOVAQUONE [Concomitant]
  7. CLINDAMYCIN HCL [Concomitant]
  8. CLONAZEPAM [Concomitant]
  9. COMPAZINE [Concomitant]
  10. LASIX [Concomitant]
  11. OMEPRAZOLE [Concomitant]
  12. OXYCODONE HCL [Concomitant]
  13. OXYCONTIN [Concomitant]
  14. PREDNISONE [Concomitant]
  15. SEROQUEL [Concomitant]
  16. TESSALON [Concomitant]
  17. TRILISATE [Concomitant]
  18. ZOFRAN [Concomitant]
  19. ZYPREXA [Concomitant]

REACTIONS (7)
  - CHEST PAIN [None]
  - COUGH [None]
  - DYSPNOEA [None]
  - KLEBSIELLA INFECTION [None]
  - PLEURAL EFFUSION [None]
  - PULMONARY CONGESTION [None]
  - SPUTUM CULTURE POSITIVE [None]
